FAERS Safety Report 14355597 (Version 1)
Quarter: 2018Q1

REPORT INFORMATION
  Report Type: Spontaneous
  Country: TW (occurrence: TW)
  Receive Date: 20180105
  Receipt Date: 20180105
  Transmission Date: 20180509
  Serious: Yes (Other)
  Sender: FDA-Public Use
  Company Number: TW-MYLANLABS-2017M1082650

PATIENT
  Age: 35 Year
  Sex: Male

DRUGS (4)
  1. ACETAZOLAMIDE. [Concomitant]
     Active Substance: ACETAZOLAMIDE
     Indication: UVEITIS
     Dosage: 250 MG, UNK
     Route: 065
  2. PREDNISOLONE. [Suspect]
     Active Substance: PREDNISOLONE
     Indication: UVEITIS
     Dosage: UNK
     Route: 061
  3. TIMOLOL/DORZOLAMIDE [Concomitant]
     Active Substance: DORZOLAMIDE\TIMOLOL
     Indication: UVEITIS
     Dosage: UNK
     Route: 065
  4. BRIMONIDINE [Concomitant]
     Active Substance: BRIMONIDINE TARTRATE
     Indication: UVEITIS
     Dosage: UNK
     Route: 065

REACTIONS (2)
  - Glaucoma [Recovered/Resolved]
  - Keratitis [Recovered/Resolved]
